FAERS Safety Report 11311455 (Version 5)
Quarter: 2015Q3

REPORT INFORMATION
  Report Type: Spontaneous
  Country: CA (occurrence: CA)
  Receive Date: 20150727
  Receipt Date: 20150921
  Transmission Date: 20151125
  Serious: Yes (Death)
  Sender: FDA-Public Use
  Company Number: CA-BEH-2015052676

PATIENT
  Age: 17 Year
  Sex: Male

DRUGS (11)
  1. LEVAQUIN [Concomitant]
     Active Substance: LEVOFLOXACIN
  2. PENTAMIDINE [Concomitant]
     Active Substance: PENTAMIDINE
  3. CYCLOSPORIN [Concomitant]
     Active Substance: CYCLOSPORINE
  4. FLUCONAZOLE. [Concomitant]
     Active Substance: FLUCONAZOLE
  5. PRIVIGEN [Suspect]
     Active Substance: HUMAN IMMUNOGLOBULIN G
     Indication: INFECTION PROPHYLAXIS
     Dates: start: 20150626
  6. CELLCEPT [Concomitant]
     Active Substance: MYCOPHENOLATE MOFETIL\MYCOPHENOLATE MOFETIL HYDROCHLORIDE
  7. PRIVIGEN [Suspect]
     Active Substance: HUMAN IMMUNOGLOBULIN G
     Dosage: INFUSION STARTED AT 27 ML/H FOR FIRST 30 MINS, INCREASED TO 108 ML/H FOR DURATON OF THE INFUSION
     Dates: start: 20150720, end: 20150720
  8. PRIVIGEN [Suspect]
     Active Substance: HUMAN IMMUNOGLOBULIN G
     Indication: IMMUNODEFICIENCY
     Dates: start: 20150623
  9. FAMCICLOVIR. [Concomitant]
     Active Substance: FAMCICLOVIR
  10. PREDNISONE. [Concomitant]
     Active Substance: PREDNISONE
     Dosage: WEANING
  11. PRIVIGEN [Suspect]
     Active Substance: HUMAN IMMUNOGLOBULIN G
     Dosage: INFUSION STARTED AT 27 ML/H FOR FIRST 30 MINS, INCREASED TO 108 ML/H FOR DURATON OF THE INFUSION
     Dates: start: 20150720, end: 20150720

REACTIONS (22)
  - Vomiting [Fatal]
  - Skin discolouration [Fatal]
  - Fatigue [Fatal]
  - Unresponsive to stimuli [Fatal]
  - Abnormal faeces [Fatal]
  - Acidosis [Fatal]
  - Back pain [Fatal]
  - Flank pain [Fatal]
  - Faecal incontinence [Fatal]
  - Intestinal perforation [Fatal]
  - Blood urine present [Fatal]
  - Hypotension [Fatal]
  - Nausea [Fatal]
  - Acute respiratory distress syndrome [Fatal]
  - Septic shock [Fatal]
  - Pneumonia [Fatal]
  - Cardiac arrest [Fatal]
  - Hypothermia [Fatal]
  - Eye movement disorder [Fatal]
  - Tachypnoea [Fatal]
  - Tachycardia [Fatal]
  - Blood lactic acid increased [Fatal]

NARRATIVE: CASE EVENT DATE: 20150720
